FAERS Safety Report 9396282 (Version 1)
Quarter: 2013Q3

REPORT INFORMATION
  Report Type: Spontaneous
  Country: US (occurrence: US)
  Receive Date: 20130711
  Receipt Date: 20130711
  Transmission Date: 20140515
  Serious: No
  Sender: FDA-Public Use
  Company Number: US-TEVA-418493USA

PATIENT
  Age: 24 Year
  Sex: Female
  Weight: 72.64 kg

DRUGS (1)
  1. PLAN B ONE-STEP [Suspect]
     Indication: POST COITAL CONTRACEPTION
     Route: 048
     Dates: start: 20130707, end: 20130707

REACTIONS (3)
  - Dyspnoea [Recovered/Resolved]
  - Menstruation delayed [Not Recovered/Not Resolved]
  - Fatigue [Recovered/Resolved]
